FAERS Safety Report 15917550 (Version 2)
Quarter: 2019Q1

REPORT INFORMATION
  Report Type: Spontaneous
  Country: JP (occurrence: JP)
  Receive Date: 20190205
  Receipt Date: 20190306
  Transmission Date: 20190417
  Serious: Yes (Other)
  Sender: FDA-Public Use
  Company Number: JP-ROCHE-2239604

PATIENT
  Age: 80 Year
  Sex: Female

DRUGS (8)
  1. TRAMCET [Concomitant]
     Active Substance: ACETAMINOPHEN\TRAMADOL
     Route: 065
     Dates: start: 20120131
  2. BONVIVA [Suspect]
     Active Substance: IBANDRONATE SODIUM
     Indication: OSTEOPOROSIS
     Route: 042
     Dates: start: 20140415, end: 20180315
  3. VIVIANT [Concomitant]
     Active Substance: BAZEDOXIFENE
     Indication: OSTEOPOROSIS
     Route: 065
     Dates: start: 20130127, end: 20131227
  4. TERNELIN [Concomitant]
     Active Substance: TIZANIDINE
     Route: 048
     Dates: start: 20120611, end: 20150807
  5. BONALON [Suspect]
     Active Substance: ALENDRONATE SODIUM
     Indication: PRODUCT USED FOR UNKNOWN INDICATION
     Route: 041
     Dates: start: 20130319, end: 20140318
  6. MAGMITT [Concomitant]
     Active Substance: MAGNESIUM OXIDE
     Route: 048
     Dates: start: 20120131
  7. EVISTA [Concomitant]
     Active Substance: RALOXIFENE HYDROCHLORIDE
     Indication: OSTEOPOROSIS
     Route: 065
     Dates: start: 20100615
  8. PRORENAL (JAPAN) [Concomitant]
     Active Substance: LIMAPROST
     Route: 065
     Dates: start: 20120117, end: 20140612

REACTIONS (3)
  - Osteomyelitis [Unknown]
  - Anaemia [Unknown]
  - Colon cancer [Unknown]

NARRATIVE: CASE EVENT DATE: 20160404
